FAERS Safety Report 22356274 (Version 1)
Quarter: 2023Q2

REPORT INFORMATION
  Report Type: Spontaneous
  Country: CN (occurrence: CN)
  Receive Date: 20230523
  Receipt Date: 20230523
  Transmission Date: 20230722
  Serious: Yes (Death, Hospitalization)
  Sender: FDA-Public Use
  Company Number: CN-MYLANLABS-2023M1054133

PATIENT
  Age: 63 Year
  Sex: Male

DRUGS (11)
  1. ATORVASTATIN [Suspect]
     Active Substance: ATORVASTATIN
     Indication: Lipids increased
     Dosage: 20 MILLIGRAM, HS (EVERY NIGHT)
     Route: 048
  2. CEFOPERAZONE\SULBACTAM [Concomitant]
     Active Substance: CEFOPERAZONE\SULBACTAM
     Indication: Candida infection
     Dosage: 2 GRAM, Q8H
     Route: 065
  3. CEFOPERAZONE\SULBACTAM [Concomitant]
     Active Substance: CEFOPERAZONE\SULBACTAM
     Indication: Veillonella infection
  4. CEFOPERAZONE\SULBACTAM [Concomitant]
     Active Substance: CEFOPERAZONE\SULBACTAM
     Indication: Stomatococcal infection
  5. TIGECYCLINE [Concomitant]
     Active Substance: TIGECYCLINE
     Indication: Candida infection
     Dosage: 50 MILLIGRAM, BID
     Route: 065
  6. TIGECYCLINE [Concomitant]
     Active Substance: TIGECYCLINE
     Indication: Veillonella infection
  7. TIGECYCLINE [Concomitant]
     Active Substance: TIGECYCLINE
     Indication: Stomatococcal infection
  8. FLUCONAZOLE [Concomitant]
     Active Substance: FLUCONAZOLE
     Indication: Candida infection
     Dosage: 400 MILLIGRAM, QD (INTRAVENOUS INFUSION)
     Route: 042
  9. FLUCONAZOLE [Concomitant]
     Active Substance: FLUCONAZOLE
     Indication: Veillonella infection
  10. FLUCONAZOLE [Concomitant]
     Active Substance: FLUCONAZOLE
     Indication: Stomatococcal infection
  11. CLOPIDOGREL [Concomitant]
     Active Substance: CLOPIDOGREL BISULFATE
     Indication: Antiplatelet therapy
     Dosage: UNK
     Route: 065

REACTIONS (4)
  - Drug-induced liver injury [Fatal]
  - Hepatic failure [Fatal]
  - Renal failure [Fatal]
  - Left ventricular failure [Fatal]
